FAERS Safety Report 11642190 (Version 1)
Quarter: 2015Q4

REPORT INFORMATION
  Report Type: Report from Study
  Country: JP (occurrence: JP)
  Receive Date: 20151019
  Receipt Date: 20151019
  Transmission Date: 20160304
  Serious: Yes (Hospitalization)
  Sender: FDA-Public Use
  Company Number: JP-B.I. PHARMACEUTICALS,INC./RIDGEFIELD-2015-BI-21976NB

PATIENT
  Age: 57 Year
  Sex: Male
  Weight: 59 kg

DRUGS (1)
  1. GILOTRIF [Suspect]
     Active Substance: AFATINIB
     Indication: ADENOSQUAMOUS CELL CARCINOMA
     Dosage: 40 MG
     Route: 048
     Dates: start: 20150317, end: 20150426

REACTIONS (6)
  - Blood urea increased [Recovered/Resolved]
  - Malaise [Unknown]
  - Dehydration [Recovered/Resolved]
  - Blood creatinine increased [Recovered/Resolved]
  - Decreased appetite [Recovered/Resolved]
  - Diarrhoea [Recovered/Resolved]

NARRATIVE: CASE EVENT DATE: 20150318
